FAERS Safety Report 20920952 (Version 13)
Quarter: 2023Q4

REPORT INFORMATION
  Report Type: Spontaneous
  Country: IN (occurrence: IN)
  Receive Date: 20220606
  Receipt Date: 20231206
  Transmission Date: 20240110
  Serious: Yes (Hospitalization, Other)
  Sender: FDA-Public Use
  Company Number: IN-PFIZER INC-202200604892

PATIENT
  Age: 60 Year
  Sex: Male
  Weight: 65 kg

DRUGS (3)
  1. DACOMITINIB [Suspect]
     Active Substance: DACOMITINIB
     Indication: Non-small cell lung cancer
     Dosage: 30 MG, 1X/DAY
     Route: 048
     Dates: start: 20220111
  2. DACOMITINIB [Suspect]
     Active Substance: DACOMITINIB
     Dosage: 15 MG
  3. DACOMITINIB [Suspect]
     Active Substance: DACOMITINIB
     Dosage: 15 MG+15MG 2 TABLETS AT ONCE
     Route: 048

REACTIONS (15)
  - Rash [Unknown]
  - Electrocardiogram PR shortened [Unknown]
  - Weight increased [Unknown]
  - Blood pressure increased [Not Recovered/Not Resolved]
  - White blood cell count decreased [Unknown]
  - Lung disorder [Unknown]
  - Blood urea increased [Unknown]
  - Blood glucose increased [Unknown]
  - Upper respiratory tract infection [Unknown]
  - Lymphadenopathy mediastinal [Unknown]
  - Pulmonary mass [Unknown]
  - Incorrect dose administered [Unknown]
  - Product dose omission in error [Unknown]
  - Neoplasm progression [Unknown]
  - Visual impairment [Recovered/Resolved]

NARRATIVE: CASE EVENT DATE: 20220501
